FAERS Safety Report 5771971-6 (Version None)
Quarter: 2008Q2

REPORT INFORMATION
  Report Type: 
  Country: None (occurrence: None)
  Receive Date: 20080612
  Receipt Date: 20080612
  Transmission Date: 20081010
  Serious: Yes (Life-Threatening)
  Sender: FDA-Public Use
  Company Number: None

PATIENT
  Sex: Male
  Weight: 100 kg

DRUGS (2)
  1. SUCCINYLCHOLINE CHLORIDE [Suspect]
     Indication: RESPIRATORY FAILURE
     Dosage: 100 MG X 1 IV BOLUS
     Route: 040
     Dates: start: 20080608, end: 20080608
  2. ETOMIDATE [Concomitant]

REACTIONS (4)
  - AGITATION [None]
  - DRUG INEFFECTIVE [None]
  - HYPOXIA [None]
  - RASH MACULAR [None]
